FAERS Safety Report 6128655-4 (Version None)
Quarter: 2009Q1

REPORT INFORMATION
  Report Type: 
  Country: None (occurrence: None)
  Receive Date: 20090323
  Receipt Date: 20090311
  Transmission Date: 20090719
  Serious: Yes (Other)
  Sender: FDA-Public Use
  Company Number: CO-PFIZER INC-2009182799

PATIENT

DRUGS (1)
  1. FELDENE [Suspect]
     Dosage: 40 MG, SINGLE
     Route: 030
     Dates: start: 20070922, end: 20070922

REACTIONS (2)
  - NEURITIS [None]
  - SCIATIC NERVE INJURY [None]
